FAERS Safety Report 7951911-1 (Version None)
Quarter: 2011Q4

REPORT INFORMATION
  Report Type: 
  Country: None (occurrence: None)
  Receive Date: 20111201
  Receipt Date: 20111107
  Transmission Date: 20120403
  Serious: No
  Sender: FDA-Public Use
  Company Number: US-ROXANE LABORATORIES, INC.-2011-RO-01607RO

PATIENT
  Sex: Female

DRUGS (5)
  1. MICARDIS [Concomitant]
     Indication: HYPERTENSION
  2. ALLEGRA [Concomitant]
     Indication: HYPERSENSITIVITY
  3. FLUTICASONE PROPIONATE [Suspect]
     Indication: RHINORRHOEA
     Route: 055
     Dates: start: 20111027, end: 20111027
  4. ADVAIR DISKUS 100/50 [Concomitant]
     Indication: ASTHMA
  5. ALBUTEROL [Concomitant]
     Indication: ASTHMA

REACTIONS (2)
  - DYSPNOEA [None]
  - LARYNGOSPASM [None]
